FAERS Safety Report 17359468 (Version 7)
Quarter: 2021Q3

REPORT INFORMATION
  Report Type: Spontaneous
  Country: US (occurrence: US)
  Receive Date: 20200203
  Receipt Date: 20210713
  Transmission Date: 20211014
  Serious: Yes (Other)
  Sender: FDA-Public Use
  Company Number: US-SA-2020SA023665

PATIENT
  Age: 53 Year
  Sex: Male

DRUGS (3)
  1. FABRAZYME [Suspect]
     Active Substance: AGALSIDASE BETA
     Dosage: 55 MG, QOW
     Route: 042
     Dates: start: 20200514
  2. FABRAZYME [Suspect]
     Active Substance: AGALSIDASE BETA
     Indication: FABRY^S DISEASE
     Dosage: 55 MG, QOW
     Route: 042
     Dates: start: 20160609
  3. FABRAZYME [Suspect]
     Active Substance: AGALSIDASE BETA
     Dosage: 55 MG, QOW
     Route: 042
     Dates: start: 201706

REACTIONS (10)
  - Tooth loss [Unknown]
  - Weight decreased [Unknown]
  - Nausea [Unknown]
  - Vomiting [Unknown]
  - Gastrointestinal carcinoma [Unknown]
  - Depression [Unknown]
  - Product dose omission issue [Unknown]
  - End stage renal disease [Unknown]
  - Illness [Unknown]
  - Cardiac failure congestive [Unknown]

NARRATIVE: CASE EVENT DATE: 20210507
